FAERS Safety Report 10027697 (Version 1)
Quarter: 2014Q1

REPORT INFORMATION
  Report Type: Spontaneous
  Country: US (occurrence: US)
  Receive Date: 20140321
  Receipt Date: 20140321
  Transmission Date: 20141002
  Serious: Yes (Other)
  Sender: FDA-Public Use
  Company Number: US-MALLINCKRODT-T201304966

PATIENT
  Sex: Male
  Weight: 68.27 kg

DRUGS (2)
  1. METHADONE [Suspect]
     Indication: PAIN
     Dosage: 5 MG, TID
     Route: 048
  2. OXYCONTIN [Concomitant]
     Dosage: UNK

REACTIONS (1)
  - Respiratory depression [Recovered/Resolved]
